FAERS Safety Report 21968425 (Version 1)
Quarter: 2023Q1

REPORT INFORMATION
  Report Type: Spontaneous
  Country: FR (occurrence: FR)
  Receive Date: 20230208
  Receipt Date: 20230208
  Transmission Date: 20230418
  Serious: Yes (Other)
  Sender: FDA-Public Use
  Company Number: FR-BIOGEN-2021BI01017759

PATIENT
  Age: 32 Year
  Sex: Female

DRUGS (2)
  1. TECFIDERA [Suspect]
     Active Substance: DIMETHYL FUMARATE
     Indication: Multiple sclerosis
     Dosage: MAINTENANCE DOSE
     Route: 050
     Dates: start: 202103, end: 202211
  2. TECFIDERA [Suspect]
     Active Substance: DIMETHYL FUMARATE
     Dosage: 240MG MORNING AND EVENING
     Route: 050
     Dates: start: 20210401

REACTIONS (5)
  - Face oedema [Recovered/Resolved]
  - Angioedema [Unknown]
  - Hypersensitivity [Unknown]
  - Urticaria [Recovered/Resolved]
  - Flushing [Not Recovered/Not Resolved]

NARRATIVE: CASE EVENT DATE: 20210518
